FAERS Safety Report 24372657 (Version 1)
Quarter: 2024Q3

REPORT INFORMATION
  Report Type: Spontaneous
  Country: US (occurrence: US)
  Receive Date: 20240927
  Receipt Date: 20240927
  Transmission Date: 20241017
  Serious: No
  Sender: PFIZER
  Company Number: US-PFIZER INC-202400262670

PATIENT
  Sex: Male

DRUGS (1)
  1. SULFASALAZINE [Suspect]
     Active Substance: SULFASALAZINE
     Indication: Colitis ulcerative
     Dosage: UNK

REACTIONS (5)
  - Anal fissure [Unknown]
  - Abdominal pain [Unknown]
  - Frequent bowel movements [Unknown]
  - Neutrophil count increased [Unknown]
  - Cough [Unknown]
